FAERS Safety Report 9203632 (Version 1)
Quarter: 2013Q2

REPORT INFORMATION
  Report Type: Spontaneous
  Country: US (occurrence: US)
  Receive Date: 20130402
  Receipt Date: 20130402
  Transmission Date: 20140414
  Serious: Yes (Death)
  Sender: FDA-Public Use
  Company Number: PHEH2013US007440

PATIENT
  Age: 78 Year
  Sex: Male

DRUGS (4)
  1. GLEEVEC [Suspect]
     Indication: CHRONIC MYELOID LEUKAEMIA
     Dosage: 400 MG, DAILY
     Route: 048
     Dates: start: 20100204, end: 20130307
  2. PREVACID [Concomitant]
  3. ZOCOR [Concomitant]
  4. CARVEDILOL [Concomitant]

REACTIONS (1)
  - Death [Fatal]
